FAERS Safety Report 4944061-X (Version None)
Quarter: 2006Q1

REPORT INFORMATION
  Report Type: 
  Country: None (occurrence: None)
  Receive Date: 20060315
  Receipt Date: 20060309
  Transmission Date: 20060701
  Serious: Yes (Other)
  Sender: FDA-Public Use
  Company Number: US-JNJFOC-20060302901

PATIENT
  Sex: Female

DRUGS (3)
  1. ULTRAM [Suspect]
  2. VICODIN [Concomitant]
  3. VICODIN [Concomitant]

REACTIONS (5)
  - DEPRESSION [None]
  - DRUG EXPOSURE DURING PREGNANCY [None]
  - DRUG WITHDRAWAL SYNDROME [None]
  - SUICIDAL IDEATION [None]
  - VOMITING [None]
